FAERS Safety Report 11669207 (Version 1)
Quarter: 2015Q4

REPORT INFORMATION
  Report Type: Spontaneous
  Country: US (occurrence: US)
  Receive Date: 20151027
  Receipt Date: 20151027
  Transmission Date: 20160304
  Serious: No
  Sender: FDA-Public Use
  Company Number: US-ELI_LILLY_AND_COMPANY-US201004001889

PATIENT
  Age: 86 Year
  Sex: Female

DRUGS (1)
  1. FORTEO [Suspect]
     Active Substance: TERIPARATIDE
     Indication: OSTEOPOROSIS
     Dosage: 20 UG, DAILY (1/D)
     Dates: start: 20100303, end: 20100328

REACTIONS (10)
  - Headache [Unknown]
  - Neck pain [Unknown]
  - Nausea [Unknown]
  - Pain in extremity [Recovered/Resolved]
  - Anxiety [Unknown]
  - Heart rate increased [Unknown]
  - Sleep disorder due to a general medical condition [Unknown]
  - Dizziness [Unknown]
  - Diarrhoea [Unknown]
  - Decreased appetite [Unknown]

NARRATIVE: CASE EVENT DATE: 201003
